FAERS Safety Report 8474357-9 (Version None)
Quarter: 2012Q2

REPORT INFORMATION
  Report Type: 
  Country: None (occurrence: None)
  Receive Date: 20120628
  Receipt Date: 20110623
  Transmission Date: 20120825
  Serious: Yes (Other)
  Sender: FDA-Public Use
  Company Number: US-MYLANLABS-2011S1013072

PATIENT
  Age: 60 Year
  Sex: Male

DRUGS (11)
  1. METOPROLOL TARTRATE [Concomitant]
  2. CLOZAPINE [Suspect]
     Route: 048
     Dates: end: 20110505
  3. CLOZAPINE [Suspect]
     Route: 048
     Dates: start: 20110501
  4. METFORMIN HCL [Concomitant]
  5. LITHIUM CARBONATE [Concomitant]
  6. CLOZAPINE [Suspect]
     Indication: SCHIZOPHRENIA
     Route: 048
     Dates: end: 20110505
  7. CLOZAPINE [Suspect]
     Route: 048
     Dates: start: 20110501
  8. LOPID [Concomitant]
  9. ACTOS [Concomitant]
  10. GLIPIZIDE [Concomitant]
  11. PRAVASTATIN [Concomitant]

REACTIONS (2)
  - GRANULOCYTOPENIA [None]
  - LEUKOPENIA [None]
